FAERS Safety Report 15750289 (Version 1)
Quarter: 2018Q4

REPORT INFORMATION
  Report Type: Report from Study
  Country: DE (occurrence: DE)
  Receive Date: 20181221
  Receipt Date: 20181221
  Transmission Date: 20190205
  Serious: Yes (Other)
  Sender: FDA-Public Use
  Company Number: DE-TEVA-2018-DE-989419

PATIENT
  Age: 50 Year
  Sex: Female
  Weight: 142 kg

DRUGS (6)
  1. PREGABALIN. [Suspect]
     Active Substance: PREGABALIN
     Dosage: UNK UNK, 2X/DAY (1-0-2)
     Route: 065
  2. LUISA [Suspect]
     Active Substance: ETHINYL ESTRADIOL\LEVONORGESTREL
     Indication: CHEMICAL CONTRACEPTION
     Dosage: 0.15/0.03MG
     Dates: start: 20180501, end: 20180520
  3. RAMIPRIL. [Suspect]
     Active Substance: RAMIPRIL
     Dosage: 1 DOSAGE FORMS DAILY; 1 DF, 1X/DAY (5, 1-0-0)
     Route: 065
  4. TIZANIDIN [Suspect]
     Active Substance: TIZANIDINE HYDROCHLORIDE
     Dosage: 2 MILLIGRAM DAILY; 2 MG, 2X/DAY (1-0-1)
     Route: 065
  5. METOHEXAL [Suspect]
     Active Substance: METOPROLOL
     Dosage: 1 DOSAGE FORMS DAILY; 1 DF, 2X/DAY (1-0-1)
     Route: 065
  6. FENTANYL. [Suspect]
     Active Substance: FENTANYL
     Dosage: UNK (EVERY THREE DAYS, Q3D)
     Route: 065

REACTIONS (6)
  - Musculoskeletal stiffness [Unknown]
  - Tension [Unknown]
  - Discomfort [Unknown]
  - Peripheral swelling [Unknown]
  - Muscular weakness [Unknown]
  - Deep vein thrombosis [Unknown]

NARRATIVE: CASE EVENT DATE: 20180522
